FAERS Safety Report 19408543 (Version 1)
Quarter: 2021Q2

REPORT INFORMATION
  Report Type: Other
  Country: IE (occurrence: IE)
  Receive Date: 20210612
  Receipt Date: 20210612
  Transmission Date: 20210717
  Serious: Yes (Life-Threatening, Hospitalization, Disabling)
  Sender: FDA-Public Use
  Company Number: IE-NOSTRUM LABORATORIES, INC.-2112656

PATIENT
  Sex: Female

DRUGS (1)
  1. THEOPHYLLINE (ANHYDROUS) EXTENDED?RELEASE [Suspect]
     Active Substance: THEOPHYLLINE ANHYDROUS
     Indication: ASTHMA
     Route: 048

REACTIONS (5)
  - Intentional overdose [Recovered/Resolved with Sequelae]
  - Status epilepticus [Recovered/Resolved with Sequelae]
  - Amnestic disorder [Not Recovered/Not Resolved]
  - Nosocomial infection [Recovered/Resolved]
  - Lactic acidosis [Recovered/Resolved with Sequelae]
